FAERS Safety Report 10172883 (Version 2)
Quarter: 2014Q4

REPORT INFORMATION
  Report Type: Spontaneous
  Country: US (occurrence: None)
  Receive Date: 20140416
  Receipt Date: 20141205
  Transmission Date: 20150528
  Serious: Yes (Other)
  Sender: FDA-Public Use
  Company Number: 163-POMAL-13120935

PATIENT
  Age: 73 Year
  Sex: Female
  Weight: 73.9 kg

DRUGS (21)
  1. POMALYST [Suspect]
     Active Substance: POMALIDOMIDE
     Indication: PLASMA CELL MYELOMA
     Dosage: 4 MG, 21 IN 21 D, PO
     Route: 048
     Dates: start: 20131003
  2. RITALIN [Concomitant]
     Active Substance: METHYLPHENIDATE HYDROCHLORIDE
  3. ASPIRIN (ACETYLSALICYLIC ACID) [Concomitant]
     Active Substance: ASPIRIN
  4. XARELTO [Concomitant]
     Active Substance: RIVAROXABAN
  5. KLOR CON M20 (POTASSIUM CHLORIDE) [Concomitant]
  6. CALCIUM + VITAMIN D (LEKOVIT CA) [Concomitant]
     Active Substance: CALCIUM\VITAMIN D
  7. TRUSOPT [Concomitant]
     Active Substance: DORZOLAMIDE HYDROCHLORIDE
  8. VITAMIN E [Concomitant]
     Active Substance: .ALPHA.-TOCOPHEROL
  9. VALTREX [Concomitant]
     Active Substance: VALACYCLOVIR HYDROCHLORIDE
  10. VITAMIN C [Concomitant]
     Active Substance: ASCORBIC ACID
  11. ACIDOPHILLUS PROBIOTIC (CAPSULE) [Concomitant]
  12. OMEPRAZOLE. [Concomitant]
     Active Substance: OMEPRAZOLE
  13. LIVALO [Concomitant]
     Active Substance: PITAVASTATIN CALCIUM
  14. LASIX [Concomitant]
     Active Substance: FUROSEMIDE
  15. VITAMIN D (ERGOCALCIFEROL) [Concomitant]
     Active Substance: ERGOCALCIFEROL
  16. COREG [Concomitant]
     Active Substance: CARVEDILOL
  17. ONDANSETRON HCL (ONDANSETRON HYDROCHLORIDE) [Concomitant]
     Active Substance: ONDANSETRON HYDROCHLORIDE
  18. VITAMIN B12 [Concomitant]
     Active Substance: CYANOCOBALAMIN
  19. CORICIDIN (CORICIDIN) [Concomitant]
  20. DEXAMETHASONE (DEXAMETHASONE) [Concomitant]
     Active Substance: DEXAMETHASONE
  21. POTASSIUM (POTASSIUM) [Concomitant]
     Active Substance: POTASSIUM

REACTIONS (4)
  - Fatigue [None]
  - Muscle spasms [None]
  - Nasopharyngitis [None]
  - Neuropathy peripheral [None]

NARRATIVE: CASE EVENT DATE: 2013
